FAERS Safety Report 17307739 (Version 1)
Quarter: 2020Q1

REPORT INFORMATION
  Report Type: Spontaneous
  Country: US (occurrence: US)
  Receive Date: 20200123
  Receipt Date: 20200123
  Transmission Date: 20200409
  Serious: Yes (Other)
  Sender: FDA-Public Use
  Company Number: US-AMGEN-USASP2020006838

PATIENT

DRUGS (1)
  1. PROLIA [Suspect]
     Active Substance: DENOSUMAB
     Indication: PRODUCT USED FOR UNKNOWN INDICATION
     Dosage: UNK
     Route: 065

REACTIONS (14)
  - Pain in extremity [Unknown]
  - Gastrooesophageal reflux disease [Unknown]
  - Rectal abscess [Unknown]
  - Vitamin D increased [Unknown]
  - Endocarditis [Unknown]
  - Noninfective gingivitis [Unknown]
  - Arthralgia [Unknown]
  - Bone pain [Unknown]
  - Head discomfort [Unknown]
  - Constipation [Unknown]
  - Inflammation [Unknown]
  - Ovarian disorder [Unknown]
  - Rash [Unknown]
  - Localised infection [Unknown]
